FAERS Safety Report 4890680-9 (Version None)
Quarter: 2006Q1

REPORT INFORMATION
  Report Type: 
  Country: None (occurrence: None)
  Receive Date: 20060125
  Receipt Date: 20060112
  Transmission Date: 20060701
  Serious: Yes (Other)
  Sender: FDA-Public Use
  Company Number: UG-BOEHRINGER INGELHEIM PHARMACEUTICALS, INC.-2006-DE-00174GD

PATIENT
  Age: 32 Year
  Sex: Male

DRUGS (1)
  1. TRIOMUNE [Suspect]

REACTIONS (2)
  - IMMUNE RECONSTITUTION SYNDROME [None]
  - TUBERCULOSIS [None]
